FAERS Safety Report 23246978 (Version 1)
Quarter: 2023Q4

REPORT INFORMATION
  Report Type: Spontaneous
  Country: CN (occurrence: CN)
  Receive Date: 20231130
  Receipt Date: 20231130
  Transmission Date: 20240110
  Serious: Yes (Other)
  Sender: FDA-Public Use
  Company Number: CN-PFIZER INC-PV202300192571

PATIENT
  Age: 65 Year
  Sex: Male
  Weight: 60 kg

DRUGS (3)
  1. LORBRENA [Suspect]
     Active Substance: LORLATINIB
     Indication: Targeted cancer therapy
     Dosage: 75 MG, 1X/DAY
     Route: 048
     Dates: start: 20190712
  2. LORBRENA [Suspect]
     Active Substance: LORLATINIB
     Dosage: 87.5 MG, 1X/DAY
     Route: 048
     Dates: start: 202308
  3. LORBRENA [Suspect]
     Active Substance: LORLATINIB
     Dosage: 75 MG, 1X/DAY
     Route: 048
     Dates: end: 20231123

REACTIONS (3)
  - Hallucination [Recovering/Resolving]
  - Cognitive disorder [Recovering/Resolving]
  - Product prescribing error [Unknown]

NARRATIVE: CASE EVENT DATE: 20230801
